FAERS Safety Report 14973274 (Version 2)
Quarter: 2018Q3

REPORT INFORMATION
  Report Type: Report from Study
  Country: US (occurrence: US)
  Receive Date: 20180605
  Receipt Date: 20180926
  Transmission Date: 20181010
  Serious: Yes (Death, Hospitalization, Other)
  Sender: FDA-Public Use
  Company Number: PHHO2017US001974

PATIENT
  Age: 61 Year
  Sex: Male
  Weight: 59.82 kg

DRUGS (12)
  1. MULTIPLE VITAMINS [Concomitant]
     Active Substance: VITAMINS
     Indication: PRODUCT USED FOR UNKNOWN INDICATION
     Route: 065
  2. GSK2118436 [Suspect]
     Active Substance: DABRAFENIB
     Dosage: 100 MG
     Route: 048
     Dates: start: 20170306, end: 20170306
  3. GSK2118436 [Suspect]
     Active Substance: DABRAFENIB
     Dosage: 150 MG, BID
     Route: 048
     Dates: end: 20161114
  4. TRAMETINIB [Suspect]
     Active Substance: TRAMETINIB
     Indication: MALIGNANT MELANOMA
     Dosage: 46 MG (TOTAL DOSE)
     Route: 048
     Dates: start: 20161017, end: 20161108
  5. TRAMETINIB [Suspect]
     Active Substance: TRAMETINIB
     Dosage: 6 MG (TOTAL DOSE)
     Route: 048
     Dates: end: 20161115
  6. TRAMETINIB [Suspect]
     Active Substance: TRAMETINIB
     Dosage: 2 MG (TOTAL DOSE)
     Route: 048
     Dates: end: 20161114
  7. NAVITOCLAX [Suspect]
     Active Substance: NAVITOCLAX
     Dosage: 225 MG, DOSE REDUCED
     Route: 048
     Dates: end: 20170306
  8. LOSARTAN POTASSIUM. [Concomitant]
     Active Substance: LOSARTAN POTASSIUM
     Indication: PRODUCT USED FOR UNKNOWN INDICATION
     Route: 065
  9. GSK2118436 [Suspect]
     Active Substance: DABRAFENIB
     Dosage: 750 MG (TOTAL DOSE)
     Route: 048
     Dates: end: 20161116
  10. GSK2118436 [Suspect]
     Active Substance: DABRAFENIB
     Indication: MALIGNANT MELANOMA
     Dosage: 6750 MG (TOTAL DOSE)
     Route: 048
     Dates: start: 20161017, end: 20161108
  11. TRAMETINIB [Suspect]
     Active Substance: TRAMETINIB
     Dosage: 2 MG
     Route: 048
     Dates: start: 20170306, end: 20170306
  12. NAVITOCLAX [Suspect]
     Active Substance: NAVITOCLAX
     Indication: MALIGNANT MELANOMA
     Dosage: 7950 MG (TOTAL DOSE)
     Route: 048
     Dates: start: 20161017, end: 20161108

REACTIONS (8)
  - Haemorrhage intracranial [Unknown]
  - White blood cell count decreased [Recovered/Resolved]
  - Platelet count decreased [Recovered/Resolved]
  - Pyrexia [Not Recovered/Not Resolved]
  - Platelet count decreased [Recovered/Resolved with Sequelae]
  - Acute kidney injury [Fatal]
  - Lymphocyte count decreased [Recovered/Resolved]
  - Neutrophil count decreased [Recovered/Resolved]

NARRATIVE: CASE EVENT DATE: 20161109
